FAERS Safety Report 21338419 (Version 1)
Quarter: 2022Q3

REPORT INFORMATION
  Report Type: Spontaneous
  Country: US (occurrence: US)
  Receive Date: 20220915
  Receipt Date: 20220915
  Transmission Date: 20221027
  Serious: No
  Sender: FDA-Public Use
  Company Number: US-BIOGEN-2022BI01116030

PATIENT
  Sex: Female

DRUGS (4)
  1. TECFIDERA [Suspect]
     Active Substance: DIMETHYL FUMARATE
     Indication: Multiple sclerosis
     Dosage: FOR 7 DAYS
     Route: 050
  2. TECFIDERA [Suspect]
     Active Substance: DIMETHYL FUMARATE
     Dosage: 120 MG CAPSULE BY MOUTH TWICE DAILY FOR 7 DAYS TAKEN INITIALLY, THEN 240 MG CAPSULE BY MOUTH TWIC...
     Route: 050
     Dates: start: 20220401, end: 20220407
  3. TECFIDERA [Suspect]
     Active Substance: DIMETHYL FUMARATE
     Route: 050
     Dates: start: 20220408
  4. TECFIDERA [Suspect]
     Active Substance: DIMETHYL FUMARATE
     Dosage: 1-120 MG CAPSULE BY MOUTH TWICE DAILY FOR 7 DAYS, THEN 1-240 MG CAPSULE BY MOUTH TWICE DAILY.
     Route: 050
     Dates: start: 20220415

REACTIONS (13)
  - Balance disorder [Unknown]
  - Muscular weakness [Unknown]
  - Visual impairment [Unknown]
  - Stress [Unknown]
  - Weight decreased [Unknown]
  - Arthralgia [Unknown]
  - Abdominal distension [Unknown]
  - Multiple sclerosis relapse [Unknown]
  - Abdominal discomfort [Unknown]
  - Pruritus [Unknown]
  - Hot flush [Unknown]
  - Depressed mood [Unknown]
  - Rash [Recovered/Resolved]

NARRATIVE: CASE EVENT DATE: 20220101
